FAERS Safety Report 10789730 (Version 1)
Quarter: 2015Q1

REPORT INFORMATION
  Report Type: Spontaneous
  Country: US (occurrence: US)
  Receive Date: 20150212
  Receipt Date: 20150212
  Transmission Date: 20150721
  Serious: Yes (Other)
  Sender: FDA-Public Use
  Company Number: US-TEVA-539449USA

PATIENT
  Age: 59 Year
  Sex: Female

DRUGS (7)
  1. DULOXETINE [Concomitant]
     Active Substance: DULOXETINE
     Dates: start: 20141029
  2. MODAFINIL. [Concomitant]
     Active Substance: MODAFINIL
     Dates: start: 20141029
  3. OMEPRAZOLE. [Concomitant]
     Active Substance: OMEPRAZOLE
     Dates: start: 20141029
  4. COPAXONE [Suspect]
     Active Substance: GLATIRAMER ACETATE
     Indication: MULTIPLE SCLEROSIS
     Route: 058
     Dates: start: 20140417
  5. LORAZEPAM. [Concomitant]
     Active Substance: LORAZEPAM
     Dates: start: 20141103
  6. TRAVATAN Z [Concomitant]
     Active Substance: TRAVOPROST
     Dates: start: 20141204
  7. BACLOFEN. [Concomitant]
     Active Substance: BACLOFEN
     Dates: start: 20141103

REACTIONS (1)
  - Fall [Unknown]

NARRATIVE: CASE EVENT DATE: 201411
